FAERS Safety Report 4412792-6 (Version None)
Quarter: 2004Q3

REPORT INFORMATION
  Report Type: 
  Country: None (occurrence: None)
  Receive Date: 20040727
  Receipt Date: 20040714
  Transmission Date: 20050211
  Serious: Yes (Other)
  Sender: FDA-Public Use
  Company Number: 2004032764

PATIENT
  Sex: Female
  Weight: 54.8852 kg

DRUGS (15)
  1. NEURONTIN [Suspect]
     Indication: GRAND MAL CONVULSION
     Dosage: 300 MG (100 MG, 3 IN 1 D) ORAL
     Route: 048
  2. CALCIUM (CALCIUM) [Suspect]
     Indication: ILL-DEFINED DISORDER
     Dosage: ORAL
     Route: 048
  3. POTASSIUM CHLORIDE [Suspect]
     Indication: ILL-DEFINED DISORDER
     Dosage: 10 MEQ (10 MEQ, DAILY)
  4. MAGNESIUM (MAGNESIUM) [Suspect]
     Indication: ILL-DEFINED DISORDER
  5. SELENIUM (SELENIUM) [Suspect]
     Indication: ILL-DEFINED DISORDER
  6. ALENDRONATE SODIUM [Concomitant]
  7. DIGOXIN [Concomitant]
  8. LEVOTHYROXINE SODIUM [Concomitant]
  9. WARFARIN SODIUM [Concomitant]
  10. FLUVASTATIN (FLUVASTATIN) [Concomitant]
  11. FAMOTIDINE [Concomitant]
  12. ACETAMINOPHEN [Concomitant]
  13. DIPHENHYDRAMINE HCL [Concomitant]
  14. CONJUGATED ESTROGENS [Concomitant]
  15. FUROSEMIDE [Concomitant]

REACTIONS (6)
  - CARDIAC MURMUR [None]
  - CARDIAC VALVE DISEASE [None]
  - CONDITION AGGRAVATED [None]
  - CONVULSION [None]
  - DRUG INTERACTION [None]
  - HERPES VIRUS INFECTION [None]
